FAERS Safety Report 10191947 (Version 2)
Quarter: 2014Q3

REPORT INFORMATION
  Report Type: Spontaneous
  Country: US (occurrence: US)
  Receive Date: 20140523
  Receipt Date: 20140702
  Transmission Date: 20150326
  Serious: No
  Sender: FDA-Public Use
  Company Number: US-PFIZER INC-2014141145

PATIENT
  Age: 59 Year
  Sex: Female
  Weight: 72.6 kg

DRUGS (2)
  1. ATORVASTATIN CALCIUM. [Suspect]
     Active Substance: ATORVASTATIN CALCIUM
     Indication: BLOOD CHOLESTEROL INCREASED
     Dosage: 40 MG, DAILY
     Dates: start: 2013, end: 20130802
  2. HYDROCHLOROTHIAZIDE, VALSARTAN [Concomitant]
     Indication: HYPERTENSION
     Dosage: HYDROCHLOROTHIAZIDE 12.5 MG/ VALSARTAN 80 MG), DAILY

REACTIONS (1)
  - Pruritus [Recovered/Resolved]

NARRATIVE: CASE EVENT DATE: 201307
